FAERS Safety Report 7720244-0 (Version None)
Quarter: 2011Q3

REPORT INFORMATION
  Report Type: 
  Country: None (occurrence: None)
  Receive Date: 20110831
  Receipt Date: 20110824
  Transmission Date: 20111222
  Serious: Yes (Hospitalization, Other)
  Sender: FDA-Public Use
  Company Number: JP-PFIZER INC-2011176795

PATIENT
  Age: 82 Year
  Sex: Female
  Weight: 48.5 kg

DRUGS (4)
  1. VOLTAREN [Suspect]
     Indication: ANALGESIC THERAPY
     Dosage: 1 DF, AS NEEDED
     Route: 054
     Dates: start: 20110625, end: 20110707
  2. LYRICA [Suspect]
     Indication: PAIN
     Dosage: 150 MG, 2X/DAY
     Route: 048
     Dates: start: 20110307, end: 20110707
  3. LYRICA [Suspect]
     Indication: OSTEOARTHRITIS
     Dosage: 25 MG DAILY
     Route: 048
  4. LOXOPROFEN SODIUM [Suspect]
     Indication: ANALGESIC THERAPY
     Dosage: 1 DF, 3X/DAY
     Route: 048
     Dates: start: 20110625, end: 20110707

REACTIONS (4)
  - ANAEMIA [None]
  - CARDIAC FAILURE CONGESTIVE [None]
  - RENAL IMPAIRMENT [None]
  - SODIUM RETENTION [None]
